FAERS Safety Report 16430407 (Version 1)
Quarter: 2019Q2

REPORT INFORMATION
  Report Type: Spontaneous
  Country: DE (occurrence: DE)
  Receive Date: 20190614
  Receipt Date: 20190614
  Transmission Date: 20190711
  Serious: Yes (Hospitalization)
  Sender: FDA-Public Use
  Company Number: DE-AUROBINDO-AUR-APL-2019-034459

PATIENT

DRUGS (1)
  1. VORICONAZOLE. [Suspect]
     Active Substance: VORICONAZOLE
     Indication: ASPERGILLUS INFECTION
     Dosage: 6 MG/KG BODY WEIGHT, AS LOADING DOSE AND 4 MG/KG BW AS MAINTENANCE
     Route: 065

REACTIONS (2)
  - Disease progression [Recovered/Resolved]
  - Tracheobronchitis [Recovered/Resolved]
